FAERS Safety Report 6260955-X (Version None)
Quarter: 2009Q3

REPORT INFORMATION
  Report Type: 
  Country: None (occurrence: None)
  Receive Date: 20090709
  Receipt Date: 20090706
  Transmission Date: 20100115
  Serious: Yes (Other)
  Sender: FDA-Public Use
  Company Number: US-BRISTOL-MYERS SQUIBB COMPANY-14687578

PATIENT
  Sex: Male
  Weight: 66 kg

DRUGS (1)
  1. REYATAZ [Suspect]

REACTIONS (3)
  - BLOOD HIV RNA INCREASED [None]
  - DRUG INEFFECTIVE [None]
  - HIV WASTING SYNDROME [None]
